FAERS Safety Report 5153740-3 (Version None)
Quarter: 2006Q4

REPORT INFORMATION
  Report Type: 
  Country: None (occurrence: None)
  Receive Date: 20061120
  Receipt Date: 20060502
  Transmission Date: 20070319
  Serious: Yes (Hospitalization)
  Sender: FDA-Public Use
  Company Number: US-ELI_LILLY_AND_COMPANY-US200607002353

PATIENT
  Sex: Male
  Weight: 113.38 kg

DRUGS (1)
  1. ZYPREXA [Suspect]
     Dosage: 15 MG, UNK
     Dates: start: 19990101, end: 20020201

REACTIONS (2)
  - DIABETES MELLITUS [None]
  - MYOCARDIAL INFARCTION [None]
